FAERS Safety Report 9755621 (Version 1)
Quarter: 2013Q4

REPORT INFORMATION
  Report Type: Spontaneous
  Country: US (occurrence: US)
  Receive Date: 20131213
  Receipt Date: 20131213
  Transmission Date: 20140711
  Serious: No
  Sender: FDA-Public Use
  Company Number: US-GLAXOSMITHKLINE-A1021287A

PATIENT
  Age: 72 Year
  Sex: Male

DRUGS (7)
  1. WALGREENS NICOTINE TRANSDERMAL SYSTEM PATCH CLEAR, 21MG [Suspect]
     Indication: EX-TOBACCO USER
     Dates: end: 201304
  2. COFFEE [Concomitant]
  3. DIGOXIN [Concomitant]
  4. DIOVAN [Concomitant]
  5. ALBUTEROL SULFATE [Concomitant]
  6. ATROVENT [Concomitant]
  7. PRO-AIR [Concomitant]

REACTIONS (2)
  - Overdose [Not Recovered/Not Resolved]
  - Dysgeusia [Not Recovered/Not Resolved]
